FAERS Safety Report 5496630-9 (Version None)
Quarter: 2007Q4

REPORT INFORMATION
  Report Type: 
  Country: None (occurrence: None)
  Receive Date: 20071025
  Receipt Date: 20070716
  Transmission Date: 20080405
  Serious: No
  Sender: FDA-Public Use
  Company Number: A0660316A

PATIENT
  Age: 83 Year
  Sex: Female
  Weight: 63.6 kg

DRUGS (9)
  1. ADVAIR DISKUS 100/50 [Suspect]
     Indication: CHRONIC OBSTRUCTIVE PULMONARY DISEASE
     Dosage: 1PUFF TWICE PER DAY
     Route: 055
     Dates: start: 20070611, end: 20070615
  2. SPIRIVA [Concomitant]
     Route: 048
  3. TOPROL-XL [Concomitant]
     Dosage: 50MG PER DAY
     Route: 048
  4. NASACORT [Concomitant]
     Route: 045
  5. UNKNOWN MEDICATION [Concomitant]
     Route: 048
  6. NEURONTIN [Concomitant]
     Dosage: 300MG TWICE PER DAY
     Route: 048
  7. IBUPROFEN [Concomitant]
     Dosage: 600MG AS REQUIRED
     Route: 048
  8. ASPIRIN [Concomitant]
     Route: 048
  9. ELAVIL [Concomitant]
     Dosage: 20MG PER DAY
     Route: 048

REACTIONS (1)
  - URTICARIA [None]
